FAERS Safety Report 22004575 (Version 2)
Quarter: 2023Q1

REPORT INFORMATION
  Report Type: Spontaneous
  Country: TR (occurrence: TR)
  Receive Date: 20230217
  Receipt Date: 20230320
  Transmission Date: 20230418
  Serious: Yes (Other)
  Sender: FDA-Public Use
  Company Number: TR-BAYER-2022P024235

PATIENT
  Age: 37 Year
  Sex: Female
  Weight: 70 kg

DRUGS (3)
  1. CLIMARA [Suspect]
     Active Substance: ESTRADIOL
     Indication: Hormone replacement therapy
     Dosage: UNK
     Route: 062
     Dates: start: 20221009, end: 20221226
  2. CLIMARA [Suspect]
     Active Substance: ESTRADIOL
     Indication: In vitro fertilisation
  3. TRIPTORELIN ACETATE [Concomitant]
     Active Substance: TRIPTORELIN ACETATE
     Indication: In vitro fertilisation
     Dosage: UNK
     Dates: start: 202210, end: 20221109

REACTIONS (4)
  - Foetal death [None]
  - Maternal exposure during pregnancy [Recovered/Resolved]
  - Off label use [Recovered/Resolved]
  - Device adhesion issue [None]

NARRATIVE: CASE EVENT DATE: 20221009
